FAERS Safety Report 24608169 (Version 1)
Quarter: 2024Q4

REPORT INFORMATION
  Report Type: Spontaneous
  Country: US (occurrence: US)
  Receive Date: 20241112
  Receipt Date: 20241112
  Transmission Date: 20250115
  Serious: Yes (Hospitalization, Other)
  Sender: PFIZER
  Company Number: US-PFIZER INC-202400297052

PATIENT
  Age: 56 Year
  Sex: Female
  Weight: 151.04 kg

DRUGS (1)
  1. IBRANCE [Suspect]
     Active Substance: PALBOCICLIB
     Dosage: 1 TABLET FOR 21 DAYS FOLLOWED BY 7 DAYS OFF
     Dates: start: 202408

REACTIONS (5)
  - Catheter site infection [Recovering/Resolving]
  - Nausea [Recovering/Resolving]
  - Fall [Recovering/Resolving]
  - Neoplasm progression [Recovering/Resolving]
  - Flatulence [Unknown]

NARRATIVE: CASE EVENT DATE: 20240101
